FAERS Safety Report 5709281-5 (Version None)
Quarter: 2008Q2

REPORT INFORMATION
  Report Type: 
  Country: None (occurrence: None)
  Receive Date: 20080418
  Receipt Date: 20080408
  Transmission Date: 20081010
  Serious: Yes (Other)
  Sender: FDA-Public Use
  Company Number: CZ-NOVOPROD-273082

PATIENT
  Sex: Male
  Weight: 1.65 kg

DRUGS (6)
  1. LEVEMIR [Suspect]
     Indication: DIABETES MELLITUS
     Dosage: 38 IU, QD
     Route: 064
     Dates: start: 20070401, end: 20080226
  2. LEVEMIR [Suspect]
     Dosage: 38 IU, QD
     Route: 063
     Dates: start: 20080226
  3. NOVORAPID [Suspect]
     Indication: DIABETES MELLITUS
     Dosage: 18 IU, QD
     Route: 064
     Dates: start: 20070401, end: 20080226
  4. NOVORAPID [Suspect]
     Dosage: 18 IU, QD
     Route: 063
     Dates: start: 20080226
  5. DOPEGYT [Concomitant]
     Dosage: 750 MG, QD
     Route: 064
     Dates: start: 20071201, end: 20080226
  6. DOPEGYT [Concomitant]
     Dosage: 750 MG, QD
     Route: 063

REACTIONS (2)
  - FOETAL DISTRESS SYNDROME [None]
  - SMALL FOR DATES BABY [None]
